FAERS Safety Report 8832568 (Version 2)
Quarter: 2015Q3

REPORT INFORMATION
  Report Type: Spontaneous
  Country: US (occurrence: US)
  Receive Date: 20121010
  Receipt Date: 20150904
  Transmission Date: 20151125
  Serious: Yes (Hospitalization)
  Sender: FDA-Public Use
  Company Number: US-BAYER-2012-104134

PATIENT
  Age: 25 Year
  Sex: Female
  Weight: 55.33 kg

DRUGS (12)
  1. BIOTIN [Concomitant]
     Active Substance: BIOTIN
     Dosage: UNK
     Route: 048
     Dates: start: 20120521
  2. MELATONIN [Concomitant]
     Active Substance: MELATONIN
     Dosage: 3 MG, 3 TABLET BY MOUTH AT BEDTIME AS NEEDED
     Route: 048
     Dates: start: 20120521
  3. CYANOCOBALAMIN. [Concomitant]
     Active Substance: CYANOCOBALAMIN
  4. BACTRIM [Concomitant]
     Active Substance: SULFAMETHOXAZOLE\TRIMETHOPRIM
     Dosage: 1 TABLET 2 TIMES DAILY
     Route: 048
     Dates: start: 20120525, end: 20120527
  5. LORATADINE. [Concomitant]
     Active Substance: LORATADINE
     Dosage: 10 MG, 1 TABLET EVERYDAY PRN
     Route: 048
     Dates: start: 20120428
  6. NORCO [Concomitant]
     Active Substance: ACETAMINOPHEN\HYDROCODONE BITARTRATE
  7. LINUM USITATISSIMUM SEED [Concomitant]
     Dosage: 1 CAPSULE EVERYDAY
     Route: 048
     Dates: start: 20120521
  8. BEYAZ [Suspect]
     Active Substance: DROSPIRENONE\ETHINYL ESTRADIOL\LEVOMEFOLATE CALCIUM
  9. COLECALCIFEROL [Concomitant]
     Active Substance: CHOLECALCIFEROL
     Dosage: 1000 U, QD
     Route: 048
     Dates: start: 20120521
  10. YAZ [Suspect]
     Active Substance: DROSPIRENONE\ETHINYL ESTRADIOL
  11. ASCORBIC ACID. [Concomitant]
     Active Substance: ASCORBIC ACID
     Dosage: 500 MG, 1 TABLET
     Route: 048
     Dates: start: 20120521
  12. PSYLLIUM [Concomitant]
     Active Substance: PLANTAGO SEED
     Dosage: 1 PACKET BY MOUTH EVERYDAY AS NEEDED
     Route: 048
     Dates: start: 20120521

REACTIONS (1)
  - Subclavian vein thrombosis [Recovering/Resolving]

NARRATIVE: CASE EVENT DATE: 20120528
